FAERS Safety Report 9509789 (Version 1)
Quarter: 2013Q3

REPORT INFORMATION
  Report Type: Spontaneous
  Country: US (occurrence: US)
  Receive Date: 20130909
  Receipt Date: 20130909
  Transmission Date: 20140515
  Serious: No
  Sender: FDA-Public Use
  Company Number: US-BRISTOL-MYERS SQUIBB COMPANY-18854299

PATIENT
  Age: 59 Year
  Sex: Female
  Weight: 77.1 kg

DRUGS (5)
  1. ABILIFY [Suspect]
     Indication: BIPOLAR DISORDER
     Dosage: 7 TO 8 YEARS
  2. WELLBUTRIN [Concomitant]
  3. KLONOPIN [Concomitant]
  4. SAPHRIS [Concomitant]
  5. LISINOPRIL [Concomitant]

REACTIONS (2)
  - Tremor [Not Recovered/Not Resolved]
  - Rabbit syndrome [Recovering/Resolving]
